FAERS Safety Report 10003321 (Version 2)
Quarter: 2014Q1

REPORT INFORMATION
  Report Type: Report from Study
  Country: JP (occurrence: JP)
  Receive Date: 20140312
  Receipt Date: 20140327
  Transmission Date: 20141002
  Serious: Yes (Hospitalization)
  Sender: FDA-Public Use
  Company Number: JP-GLAXOSMITHKLINE-B0975691A

PATIENT
  Age: 71 Year
  Sex: Male

DRUGS (13)
  1. ARZERRA [Suspect]
     Indication: CHRONIC LYMPHOCYTIC LEUKAEMIA
     Dosage: 300MG PER DAY
     Route: 042
     Dates: start: 20131126, end: 20131126
  2. ARZERRA [Suspect]
     Indication: CHRONIC LYMPHOCYTIC LEUKAEMIA
     Dosage: 1700MG PER DAY
     Route: 042
     Dates: start: 20140123, end: 20140123
  3. PREDNISOLONE [Concomitant]
     Route: 065
     Dates: start: 20131126, end: 20131126
  4. PREDNISOLONE [Concomitant]
     Route: 065
     Dates: start: 20140123, end: 20140123
  5. ACETAMINOPHEN [Concomitant]
     Route: 065
     Dates: start: 20131126, end: 20131126
  6. ACETAMINOPHEN [Concomitant]
     Route: 065
     Dates: start: 20140123, end: 20140123
  7. POLARAMINE [Concomitant]
     Route: 065
     Dates: start: 20131126, end: 20131126
  8. POLARAMINE [Concomitant]
     Route: 065
     Dates: start: 20140123, end: 20140123
  9. TAKEPRON [Concomitant]
     Dosage: 30MG PER DAY
     Route: 065
  10. BAKTAR [Concomitant]
     Dosage: .5IUAX PER DAY
     Route: 065
  11. ITRIZOLE [Concomitant]
     Dosage: 20ML PER DAY
     Route: 065
  12. ZYLORIC [Concomitant]
     Dosage: 100MG TWICE PER DAY
     Route: 048
  13. CHINESE MEDICINE [Concomitant]
     Dosage: 2.5G THREE TIMES PER DAY
     Route: 048

REACTIONS (2)
  - Adenoviral haemorrhagic cystitis [Not Recovered/Not Resolved]
  - Pyrexia [Recovered/Resolved]
